FAERS Safety Report 9657897 (Version 1)
Quarter: 2013Q4

REPORT INFORMATION
  Report Type: Spontaneous
  Country: US (occurrence: US)
  Receive Date: 20131030
  Receipt Date: 20131030
  Transmission Date: 20140711
  Serious: Yes (Hospitalization)
  Sender: FDA-Public Use
  Company Number: US-B.I. PHARMACEUTICALS,INC./RIDGEFIELD-2013-BI-34011BP

PATIENT
  Age: 83 Year
  Sex: Female
  Weight: 81 kg

DRUGS (5)
  1. CATAPRES TTS [Suspect]
     Indication: HYPERTENSION
     Dosage: STRENGTH: 7.5 MG (0.3 MG / DAY); DAILY DOSE: 7.5MG (0.3MG)
     Dates: start: 1999, end: 201307
  2. NORVASC [Concomitant]
     Indication: HYPERTENSION
     Route: 048
  3. CLONIDINE [Concomitant]
     Indication: HYPERTENSION
     Dosage: 0.2 MG
     Route: 048
     Dates: start: 201308
  4. LASIX [Concomitant]
     Indication: FLUID RETENTION
     Route: 048
  5. RED YEAST RICE [Concomitant]
     Route: 048

REACTIONS (1)
  - Blood pressure increased [Recovered/Resolved]
